FAERS Safety Report 8457877-2 (Version None)
Quarter: 2012Q2

REPORT INFORMATION
  Report Type: 
  Country: None (occurrence: None)
  Receive Date: 20120622
  Receipt Date: 20120612
  Transmission Date: 20120825
  Serious: Yes (Hospitalization)
  Sender: FDA-Public Use
  Company Number: FR-JNJFOC-20120610106

PATIENT
  Age: 15 Year
  Sex: Male

DRUGS (1)
  1. ACETAMINOPHEN AND TRAMADOL HCL [Suspect]
     Indication: TOOTHACHE
     Dosage: 37.5 MG/325 MG
     Route: 048
     Dates: start: 20120215, end: 20120228

REACTIONS (2)
  - PERSECUTORY DELUSION [None]
  - ABNORMAL BEHAVIOUR [None]
